FAERS Safety Report 4637357-2 (Version None)
Quarter: 2005Q2

REPORT INFORMATION
  Report Type: 
  Country: None (occurrence: None)
  Receive Date: 20050325
  Receipt Date: 20041203
  Transmission Date: 20051028
  Serious: No
  Sender: FDA-Public Use
  Company Number: USA041285259

PATIENT
  Age: 57 Year
  Sex: Male

DRUGS (6)
  1. FORTEO [Suspect]
     Indication: OSTEOPOROSIS
     Dates: start: 20040501
  2. TYLENOL (CAPLET) [Concomitant]
  3. NIFEDIPINE [Concomitant]
  4. ALPRAZOLAM [Concomitant]
  5. LOVASTATIN [Concomitant]
  6. IBUPROFEN [Concomitant]

REACTIONS (3)
  - BONE PAIN [None]
  - SENSORY DISTURBANCE [None]
  - TENDERNESS [None]
